FAERS Safety Report 5672858-X (Version None)
Quarter: 2008Q1

REPORT INFORMATION
  Report Type: 
  Country: None (occurrence: None)
  Receive Date: 20080319
  Receipt Date: 20080206
  Transmission Date: 20080703
  Serious: Yes (Other)
  Sender: FDA-Public Use
  Company Number: PHBS2008NO01837

PATIENT
  Age: 48 Year
  Sex: Female

DRUGS (2)
  1. TEGRETOL [Suspect]
  2. REBOXETINE [Suspect]

REACTIONS (1)
  - DRUG INTERACTION [None]
